FAERS Safety Report 21558739 (Version 1)
Quarter: 2022Q4

REPORT INFORMATION
  Report Type: Report from Study
  Country: MX (occurrence: MX)
  Receive Date: 20221107
  Receipt Date: 20221107
  Transmission Date: 20230113
  Serious: Yes (Hospitalization)
  Sender: FDA-Public Use
  Company Number: MX-002147023-NVSC2022MX080384

PATIENT
  Age: 83 Year
  Sex: Female
  Weight: 90 kg

DRUGS (11)
  1. DIOVAN [Suspect]
     Active Substance: VALSARTAN
     Indication: Hypertension
     Dosage: STARTED TO AROUND 3 YEARS AGO (160 MG, QD) AT 9 AT NIGHT
     Route: 048
     Dates: start: 2019
  2. DIOVAN [Suspect]
     Active Substance: VALSARTAN
     Dosage: 160 MG, QD
     Route: 048
     Dates: start: 2020
  3. HYDROCHLOROTHIAZIDE\VALSARTAN [Suspect]
     Active Substance: HYDROCHLOROTHIAZIDE\VALSARTAN
     Indication: Hypertension
     Dosage: STARTED TO AROUND 3 YEARS AGO (1 DOSAGE FORM, QD) AT 9 AT NIGHT
     Route: 048
     Dates: start: 2019
  4. HYDROCHLOROTHIAZIDE\VALSARTAN [Suspect]
     Active Substance: HYDROCHLOROTHIAZIDE\VALSARTAN
     Dosage: 1 DOSAGE FORM, QD
     Route: 048
     Dates: start: 2020
  5. METOPROLOL [Suspect]
     Active Substance: METOPROLOL
     Indication: Blood pressure increased
     Dosage: STARTED AROUND 3 YEARS AGO, 0.5 DOSAGE FORM (10 MG)
     Route: 048
     Dates: start: 2019
  6. SPIRIVA [Concomitant]
     Active Substance: TIOTROPIUM BROMIDE MONOHYDRATE
     Indication: Product used for unknown indication
     Dosage: UNK
     Route: 065
  7. SERETIDE [Concomitant]
     Active Substance: FLUTICASONE PROPIONATE\SALMETEROL XINAFOATE
     Indication: Product used for unknown indication
     Dosage: UNK
     Route: 065
  8. EVIPRESS [Concomitant]
     Indication: Product used for unknown indication
     Dosage: 10 MG
     Route: 065
     Dates: start: 2019
  9. AZILECT [Concomitant]
     Active Substance: RASAGILINE MESYLATE
     Indication: Parkinson^s disease
     Dosage: STARTED AROUND 3 YEARS AGO 1 MG, QD
     Route: 048
     Dates: start: 2019
  10. AZILECT [Concomitant]
     Active Substance: RASAGILINE MESYLATE
     Dosage: 1 MG, QD
     Route: 065
     Dates: start: 2020
  11. PRAMIPEXOLE [Concomitant]
     Active Substance: PRAMIPEXOLE
     Indication: Parkinson^s disease
     Dosage: 1 MG, Q12H
     Route: 048
     Dates: start: 2019

REACTIONS (10)
  - Blood pressure increased [Recovered/Resolved]
  - Oxygen saturation decreased [Unknown]
  - Fatigue [Unknown]
  - Dizziness postural [Unknown]
  - Chronic obstructive pulmonary disease [Unknown]
  - Malaise [Recovered/Resolved]
  - Tremor [Unknown]
  - Infection [Unknown]
  - Headache [Unknown]
  - Constipation [Unknown]

NARRATIVE: CASE EVENT DATE: 20220701
